FAERS Safety Report 9017980 (Version 2)
Quarter: 2013Q1

REPORT INFORMATION
  Report Type: Spontaneous
  Country: US (occurrence: US)
  Receive Date: 20130118
  Receipt Date: 20130123
  Transmission Date: 20140127
  Serious: Yes (Other)
  Sender: FDA-Public Use
  Company Number: US-ACCORD-016006

PATIENT
  Age: 14 Year
  Sex: Female

DRUGS (2)
  1. DOCETAXEL [Suspect]
     Indication: SYNOVIAL SARCOMA
     Dosage: ON DAY 8 FOR 2 CYCLES AT 21 AND 28 DAYS
  2. GEMCITABINE [Suspect]
     Indication: SYNOVIAL SARCOMA
     Dosage: ON DAYS 1 AND 8 FOR 2 CYCLES AT 21 AND 28 DAYS

REACTIONS (4)
  - Recall phenomenon [Recovered/Resolved]
  - Compartment syndrome [Recovered/Resolved]
  - Myositis [Not Recovered/Not Resolved]
  - Off label use [Unknown]
